FAERS Safety Report 15645188 (Version 2)
Quarter: 2019Q1

REPORT INFORMATION
  Report Type: Spontaneous
  Country: US (occurrence: US)
  Receive Date: 20181121
  Receipt Date: 20190325
  Transmission Date: 20190417
  Serious: No
  Sender: FDA-Public Use
  Company Number: US-SA-2018SA319517

PATIENT
  Sex: Female

DRUGS (1)
  1. PRALUENT [Suspect]
     Active Substance: ALIROCUMAB
     Indication: TYPE V HYPERLIPIDAEMIA
     Dosage: 75 MG, QOW
     Route: 058
     Dates: start: 20180815

REACTIONS (7)
  - Fluid retention [Unknown]
  - Dyspnoea [Unknown]
  - Rash [Unknown]
  - Acne [Unknown]
  - Abdominal distension [Unknown]
  - Eczema [Unknown]
  - Pruritus [Unknown]
